FAERS Safety Report 6840326-5 (Version None)
Quarter: 2010Q3

REPORT INFORMATION
  Report Type: 
  Country: None (occurrence: None)
  Receive Date: 20100714
  Receipt Date: 20100707
  Transmission Date: 20110219
  Serious: Yes (Death)
  Sender: FDA-Public Use
  Company Number: KP-SHIRE-SPV1-2010-00985

PATIENT

DRUGS (5)
  1. ELAPRASE [Suspect]
     Indication: MUCOPOLYSACCHARIDOSIS II
     Dosage: .5 MG/KG, 1X/WEEK
     Route: 041
     Dates: start: 19950411, end: 20100518
  2. HYDROXYZINE [Concomitant]
     Dosage: 10 ML, 1X/DAY:QD
  3. CEFACLOR [Concomitant]
     Indication: NASOPHARYNGITIS
     Dosage: 250 MG, 2X/DAY:BID
  4. BIOFLOR                            /00838001/ [Concomitant]
     Dosage: 250 MG, 2X/DAY:BID
  5. MEPHIROL [Concomitant]
     Dosage: 7 ML, 3X/DAY:TID

REACTIONS (1)
  - DEATH [None]
